FAERS Safety Report 6500202-4 (Version None)
Quarter: 2009Q4

REPORT INFORMATION
  Report Type: 
  Country: None (occurrence: None)
  Receive Date: 20091216
  Receipt Date: 20091211
  Transmission Date: 20100525
  Serious: Yes (Hospitalization, Other)
  Sender: FDA-Public Use
  Company Number: GB-WYE-G03094009

PATIENT
  Sex: Male

DRUGS (17)
  1. EFFEXOR [Suspect]
     Indication: ANXIETY
     Dates: start: 20080421, end: 20080428
  2. EFFEXOR [Suspect]
     Indication: DEPRESSION
     Dates: start: 20080429, end: 20080508
  3. EFFEXOR [Suspect]
     Dates: start: 20080509, end: 20080528
  4. EFFEXOR [Suspect]
     Dates: start: 20080529, end: 20080605
  5. FLUOXETINE [Concomitant]
     Indication: ANXIETY
     Dosage: 60 MG (FREQUENCY UNKNOWN)
     Dates: end: 20081101
  6. FLUOXETINE [Concomitant]
     Indication: DEPRESSION
  7. IMIPRAMINE [Concomitant]
     Indication: ANXIETY
     Dosage: UNKNOWN
     Dates: end: 20081101
  8. IMIPRAMINE [Concomitant]
     Indication: DEPRESSION
  9. CITALOPRAM HYDROBROMIDE [Suspect]
     Indication: ANXIETY
     Dates: start: 20070101, end: 20070801
  10. CITALOPRAM HYDROBROMIDE [Suspect]
     Indication: DEPRESSION
     Dates: start: 20070801, end: 20080401
  11. DIAZEPAM [Concomitant]
     Indication: ANXIETY
     Dates: start: 20080421, end: 20081101
  12. DIAZEPAM [Concomitant]
     Indication: DEPRESSION
  13. EFFEXOR XR [Suspect]
     Indication: ANXIETY
     Dates: start: 20080606, end: 20081106
  14. EFFEXOR XR [Suspect]
     Indication: DEPRESSION
     Dates: start: 20081107, end: 20081114
  15. EFFEXOR XR [Suspect]
     Dates: start: 20081115, end: 20081121
  16. OLANZAPINE [Concomitant]
     Indication: ANXIETY
     Dosage: 10 MG (FREQUENCY UNKNOWN)
     Dates: end: 20081101
  17. OLANZAPINE [Concomitant]
     Indication: DEPRESSION

REACTIONS (17)
  - APATHY [None]
  - APHASIA [None]
  - ASTHENIA [None]
  - BALANCE DISORDER [None]
  - CEREBELLAR SYNDROME [None]
  - CLUMSINESS [None]
  - COORDINATION ABNORMAL [None]
  - DRUG INEFFECTIVE [None]
  - DYSARTHRIA [None]
  - DYSPHAGIA [None]
  - EYE MOVEMENT DISORDER [None]
  - FALL [None]
  - GAIT DISTURBANCE [None]
  - MUSCLE SPASMS [None]
  - SALIVARY HYPERSECRETION [None]
  - SPEECH DISORDER [None]
  - WEIGHT DECREASED [None]
